FAERS Safety Report 8293715-9 (Version None)
Quarter: 2012Q2

REPORT INFORMATION
  Report Type: 
  Country: None (occurrence: None)
  Receive Date: 20120418
  Receipt Date: 20120413
  Transmission Date: 20120825
  Serious: Yes (Other)
  Sender: FDA-Public Use
  Company Number: DE-AMGEN-DEUSP2012020048

PATIENT
  Age: 84 Year
  Sex: Female
  Weight: 53 kg

DRUGS (2)
  1. PROLIA [Suspect]
     Indication: OSTEOPOROSIS
     Dosage: 60 MG, UNK
     Route: 058
     Dates: start: 20111018
  2. VALSARTAN [Concomitant]
     Indication: HYPERTENSION
     Dosage: 1 UNIT, BID
     Route: 048

REACTIONS (2)
  - CARDIOVASCULAR DISORDER [None]
  - SUDDEN HEARING LOSS [None]
